FAERS Safety Report 10775599 (Version 2)
Quarter: 2015Q1

REPORT INFORMATION
  Report Type: Spontaneous
  Country: CA (occurrence: CA)
  Receive Date: 20150209
  Receipt Date: 20150310
  Transmission Date: 20150721
  Serious: Yes (Other)
  Sender: FDA-Public Use
  Company Number: CA-TARO PHARMACEUTICALS U.S.A., INC-2015SUN00349

PATIENT

DRUGS (7)
  1. LANSOPROZOLE [Concomitant]
     Dosage: 30 MG, BID, OVER A YEAR
  2. TARO-CARBAMAZEPINE ORAL SUSPENSION 100 MG/5 ML [Suspect]
     Active Substance: CARBAMAZEPINE
     Dosage: UNK
  3. MULTIVITAMIN [Concomitant]
     Active Substance: VITAMINS
     Dosage: SINCE FEW YEARS AGO
  4. VENTOLIN 100 MCG [Concomitant]
     Dosage: 2 PUFFS, BID, SINCE YEARS AGO
  5. TARO-CARBAMAZEPINE ORAL SUSPENSION 100 MG/5 ML [Suspect]
     Active Substance: CARBAMAZEPINE
     Indication: SEIZURE
     Dosage: 1 TEASPOON TWICE DAILY (BID)
     Route: 048
     Dates: start: 201203
  6. FLOVENT 250 MCG [Concomitant]
     Dosage: 2 PUFFS, BID
  7. TARO-CARBAMAZEPINE ORAL SUSPENSION 100 MG/5 ML [Suspect]
     Active Substance: CARBAMAZEPINE
     Dosage: 5 ML, BID
     Route: 048
     Dates: start: 20150122, end: 20150126

REACTIONS (5)
  - Drug level decreased [Unknown]
  - Product colour issue [Unknown]
  - Seizure [Recovering/Resolving]
  - Product quality issue [Unknown]
  - Drug ineffective [Unknown]

NARRATIVE: CASE EVENT DATE: 20150126
